FAERS Safety Report 4895801-X (Version None)
Quarter: 2006Q1

REPORT INFORMATION
  Report Type: 
  Country: None (occurrence: None)
  Receive Date: 20060125
  Receipt Date: 20060120
  Transmission Date: 20060701
  Serious: Yes (Death)
  Sender: FDA-Public Use
  Company Number: HQWYE457823JAN06

PATIENT
  Sex: Male

DRUGS (2)
  1. CORDARONE [Suspect]
     Route: 048
  2. IOMEPROL (IOMEPROL) [Suspect]

REACTIONS (2)
  - DRUG INTERACTION [None]
  - THYROTOXIC CRISIS [None]
